FAERS Safety Report 12499164 (Version 1)
Quarter: 2016Q2

REPORT INFORMATION
  Report Type: Spontaneous
  Country: US (occurrence: None)
  Receive Date: 20160624
  Receipt Date: 20160624
  Transmission Date: 20160815
  Serious: Yes (Life-Threatening, Other)
  Sender: FDA-Public Use
  Company Number: None

PATIENT
  Age: 23 Year
  Sex: Female
  Weight: 72.58 kg

DRUGS (3)
  1. SUBUTEX [Concomitant]
     Active Substance: BUPRENORPHINE HYDROCHLORIDE
  2. BACTRIM [Suspect]
     Active Substance: SULFAMETHOXAZOLE\TRIMETHOPRIM
     Indication: URINARY TRACT INFECTION
     Dosage: 6 TABLET(S) EVERY 12 HOURS TAKEN BY MOUTH
     Route: 048
  3. DEPO-PROVERA [Concomitant]
     Active Substance: MEDROXYPROGESTERONE ACETATE

REACTIONS (7)
  - Glossodynia [None]
  - Feeding disorder [None]
  - Oral candidiasis [None]
  - Swollen tongue [None]
  - Hypersensitivity [None]
  - Dysphagia [None]
  - Speech disorder [None]

NARRATIVE: CASE EVENT DATE: 20160609
